FAERS Safety Report 9530278 (Version 1)
Quarter: 2013Q3

REPORT INFORMATION
  Report Type: Spontaneous
  Country: FR (occurrence: FR)
  Receive Date: 20130917
  Receipt Date: 20130917
  Transmission Date: 20140515
  Serious: Yes (Hospitalization)
  Sender: FDA-Public Use
  Company Number: FR-B.I. PHARMACEUTICALS,INC./RIDGEFIELD-2013-FF-02286FF

PATIENT
  Age: 84 Year
  Sex: Male

DRUGS (2)
  1. PRADAXA [Suspect]
     Dosage: 220 MG
     Route: 048
     Dates: start: 20130612
  2. AUGMENTIN [Suspect]
     Dosage: 1G/200MG THREE INJECTIONS DAILY

REACTIONS (2)
  - Hyperbilirubinaemia [Unknown]
  - Thrombocytopenia [Unknown]
